FAERS Safety Report 23365275 (Version 1)
Quarter: 2024Q1

REPORT INFORMATION
  Report Type: Spontaneous
  Country: IS (occurrence: IS)
  Receive Date: 20240104
  Receipt Date: 20240104
  Transmission Date: 20240410
  Serious: Yes (Hospitalization, Other)
  Sender: FDA-Public Use
  Company Number: None

PATIENT
  Age: 72 Year
  Sex: Male

DRUGS (2)
  1. OPDIVO [Suspect]
     Active Substance: NIVOLUMAB
     Indication: Oesophageal carcinoma
     Dosage: 3 MG/KG EVERY TWO WEEKS
  2. OPDIVO [Suspect]
     Active Substance: NIVOLUMAB
     Dosage: 6 MG/KG EVERY 4 WEEKS
     Dates: start: 20231017

REACTIONS (5)
  - Type 1 diabetes mellitus [Not Recovered/Not Resolved]
  - Malnutrition [Not Recovered/Not Resolved]
  - Ketoacidosis [Not Recovered/Not Resolved]
  - Vomiting [Not Recovered/Not Resolved]
  - Off label use [Unknown]

NARRATIVE: CASE EVENT DATE: 20231205
